FAERS Safety Report 5074022-4 (Version None)
Quarter: 2006Q3

REPORT INFORMATION
  Report Type: 
  Country: None (occurrence: None)
  Receive Date: 20060808
  Receipt Date: 20060315
  Transmission Date: 20061208
  Serious: No
  Sender: FDA-Public Use
  Company Number: US-AMGEN-US172559

PATIENT
  Sex: Female

DRUGS (9)
  1. EPOGEN [Suspect]
     Indication: DIALYSIS
  2. SENSIPAR [Concomitant]
     Indication: HYPERPARATHYROIDISM SECONDARY
  3. NEPHRO-VITE [Concomitant]
  4. LABETALOL HCL [Concomitant]
  5. MINOXIDIL [Concomitant]
  6. LOTENSIN [Concomitant]
  7. DILANTIN [Concomitant]
  8. RENAGEL [Concomitant]
  9. TIAZAC [Concomitant]

REACTIONS (1)
  - THERAPEUTIC RESPONSE DECREASED [None]
